FAERS Safety Report 6143015-8 (Version None)
Quarter: 2009Q2

REPORT INFORMATION
  Report Type: 
  Country: None (occurrence: None)
  Receive Date: 20090401
  Receipt Date: 20090401
  Transmission Date: 20091009
  Serious: Yes (Other)
  Sender: FDA-Public Use
  Company Number: None

PATIENT
  Age: 74 Year
  Sex: Female
  Weight: 38 kg

DRUGS (16)
  1. DEXMEDETOMIDINE [Suspect]
     Indication: SEDATIVE THERAPY
     Dosage: SEE IMAGE
     Route: 042
     Dates: start: 20080808, end: 20080808
  2. FENTANYL [Suspect]
     Indication: INDUCTION OF ANAESTHESIA
     Dosage: 200 MCG INTERVENOUS DRIP
     Route: 041
     Dates: start: 20080808, end: 20080808
  3. DORMICUM [Concomitant]
  4. SEVOFRANE [Concomitant]
  5. ULTIVA [Concomitant]
  6. PROPOFOL [Concomitant]
  7. MUSCULAX [Concomitant]
  8. HUMULIN R [Concomitant]
  9. SOLITA T [Concomitant]
  10. SOLU-CORTEF [Concomitant]
  11. FOSMICIN S [Concomitant]
  12. ADONA [Concomitant]
  13. TRANSAMIN [Concomitant]
  14. RED BLOOD CELLS [Concomitant]
  15. CORTICOSTEROIDS [Concomitant]
  16. THYRODIN [Concomitant]

REACTIONS (10)
  - BLOOD PRESSURE FLUCTUATION [None]
  - BLOOD PRESSURE INCREASED [None]
  - DRUG INTERACTION [None]
  - FEELING ABNORMAL [None]
  - INSOMNIA [None]
  - RESPIRATORY ACIDOSIS [None]
  - RESPIRATORY ARREST [None]
  - RESPIRATORY DEPRESSION [None]
  - SEDATION [None]
  - UPPER AIRWAY OBSTRUCTION [None]
